FAERS Safety Report 10878163 (Version 1)
Quarter: 2015Q1

REPORT INFORMATION
  Report Type: Spontaneous
  Country: AU (occurrence: None)
  Receive Date: 20150224
  Receipt Date: 20150224
  Transmission Date: 20150721
  Serious: Yes (Other)
  Sender: FDA-Public Use
  Company Number: AU-ALKEM-000867

PATIENT
  Sex: Male
  Weight: 3.61 kg

DRUGS (3)
  1. THYROXINE(THYROXINE) [Concomitant]
  2. LAMOTRIGINE. [Suspect]
     Active Substance: LAMOTRIGINE
     Indication: PRODUCT USED FOR UNKNOWN INDICATION
  3. QUETIAPINE [Suspect]
     Active Substance: QUETIAPINE
     Indication: PRODUCT USED FOR UNKNOWN INDICATION

REACTIONS (10)
  - Subgaleal haematoma [None]
  - Shoulder dystocia [None]
  - Cardio-respiratory arrest neonatal [None]
  - Forceps delivery [None]
  - Maternal drugs affecting foetus [None]
  - Neonatal behavioural syndrome [None]
  - Apgar score low [None]
  - Hypoxic-ischaemic encephalopathy [None]
  - Feeding disorder neonatal [None]
  - Drug withdrawal syndrome neonatal [None]
